FAERS Safety Report 7461641-0 (Version None)
Quarter: 2011Q2

REPORT INFORMATION
  Report Type: 
  Country: None (occurrence: None)
  Receive Date: 20110506
  Receipt Date: 20110503
  Transmission Date: 20111010
  Serious: Yes (Life-Threatening, Hospitalization)
  Sender: FDA-Public Use
  Company Number: US-US-EMD SERONO, INC.-7043471

PATIENT
  Sex: Male

DRUGS (15)
  1. PROZAC [Concomitant]
     Indication: DEPRESSION
     Dates: start: 20061219, end: 20070609
  2. REBIF [Suspect]
     Indication: MULTIPLE SCLEROSIS
     Route: 058
     Dates: start: 20041201, end: 20060101
  3. REBIF [Suspect]
     Route: 058
     Dates: end: 20070617
  4. CYTOXAN [Concomitant]
     Dates: start: 20061219, end: 20070401
  5. PROVIGIL [Concomitant]
     Indication: FATIGUE
     Dates: start: 20061219, end: 20080101
  6. SOLU-MEDROL [Concomitant]
     Indication: MULTIPLE SCLEROSIS
     Dosage: 1 GRAM MONTHLY
     Dates: start: 20060101, end: 20070401
  7. CYTOXAN [Concomitant]
     Indication: MULTIPLE SCLEROSIS
     Dates: start: 20060101, end: 20061219
  8. PROZAC [Concomitant]
     Dates: start: 20070918
  9. PROZAC [Concomitant]
     Dates: start: 20080115
  10. SOLU-MEDROL [Concomitant]
     Dates: start: 20071001, end: 20071001
  11. SOLU-MEDROL [Concomitant]
     Dates: start: 20071221, end: 20071223
  12. SOLU-MEDROL [Concomitant]
     Dates: start: 20070601, end: 20070605
  13. REBIF [Suspect]
     Route: 058
     Dates: start: 20060101, end: 20070601
  14. ZOFRAN [Concomitant]
     Indication: PROPHYLAXIS
     Dates: start: 20061201, end: 20070101
  15. NOVANTRONE [Concomitant]
     Indication: MULTIPLE SCLEROSIS
     Dates: start: 20050101, end: 20050601

REACTIONS (1)
  - IDIOPATHIC THROMBOCYTOPENIC PURPURA [None]
